FAERS Safety Report 15949008 (Version 5)
Quarter: 2019Q2

REPORT INFORMATION
  Report Type: Report from Study
  Country: US (occurrence: US)
  Receive Date: 20190211
  Receipt Date: 20190402
  Transmission Date: 20190711
  Serious: Yes (Hospitalization, Other)
  Sender: FDA-Public Use
  Company Number: US-B.I. PHARMACEUTICALS,INC./RIDGEFIELD-2018-BI-047410

PATIENT
  Age: 61 Year
  Sex: Male
  Weight: 80 kg

DRUGS (4)
  1. CETUXIMAB. [Suspect]
     Active Substance: CETUXIMAB
     Indication: SQUAMOUS CELL CARCINOMA OF HEAD AND NECK
     Dosage: FORMULATION: INJECTABLE SOLUTION?TOTAL DAILY DOSE: 500
     Route: 042
     Dates: start: 20180914, end: 20190118
  2. AFATINIB [Suspect]
     Active Substance: AFATINIB
     Indication: SQUAMOUS CELL CARCINOMA OF HEAD AND NECK
     Route: 048
     Dates: start: 20180914, end: 20190127
  3. AFATINIB [Suspect]
     Active Substance: AFATINIB
     Route: 048
     Dates: start: 20190219, end: 20190314
  4. CETUXIMAB. [Suspect]
     Active Substance: CETUXIMAB
     Dosage: FORMULATION: INJECTABLE SOLUTION?TOTAL DAILY DOSE: 250
     Route: 042
     Dates: start: 20190219

REACTIONS (9)
  - Cellulitis [Not Recovered/Not Resolved]
  - Syncope [Not Recovered/Not Resolved]
  - Gastric perforation [Not Recovered/Not Resolved]
  - Dysphagia [Not Recovered/Not Resolved]
  - Pyrexia [Recovered/Resolved]
  - Dyspnoea [Not Recovered/Not Resolved]
  - Abscess [Not Recovered/Not Resolved]
  - Hypoxia [Not Recovered/Not Resolved]
  - Face oedema [Not Recovered/Not Resolved]

NARRATIVE: CASE EVENT DATE: 20180920
